FAERS Safety Report 5809897-1 (Version None)
Quarter: 2008Q3

REPORT INFORMATION
  Report Type: 
  Country: None (occurrence: None)
  Receive Date: 20080714
  Receipt Date: 20080714
  Transmission Date: 20090109
  Serious: Yes (Other)
  Sender: FDA-Public Use
  Company Number: None

PATIENT
  Age: 65 Year
  Sex: Female
  Weight: 61.2356 kg

DRUGS (1)
  1. BONIVA [Suspect]
     Dosage: 150 MG 1 MONTHLY OTHER
     Route: 050

REACTIONS (7)
  - ARTHRALGIA [None]
  - CHILLS [None]
  - EYE INFLAMMATION [None]
  - HYPERSENSITIVITY [None]
  - PAIN IN EXTREMITY [None]
  - PAIN IN JAW [None]
  - SENSITIVITY OF TEETH [None]
